FAERS Safety Report 5887814-6 (Version None)
Quarter: 2008Q3

REPORT INFORMATION
  Report Type: 
  Country: None (occurrence: None)
  Receive Date: 20080918
  Receipt Date: 20080912
  Transmission Date: 20090109
  Serious: Yes (Hospitalization)
  Sender: FDA-Public Use
  Company Number: US-ABBOTT-08P-163-0476086-00

PATIENT
  Sex: Female
  Weight: 109.87 kg

DRUGS (13)
  1. HUMIRA [Suspect]
     Indication: CROHN'S DISEASE
     Route: 050
     Dates: start: 20070101
  2. MESALAMINE [Concomitant]
     Indication: CROHN'S DISEASE
     Route: 048
     Dates: start: 19980101
  3. BUDESONIDE [Concomitant]
     Indication: CROHN'S DISEASE
     Dosage: 2 CAPSULES IN THE MORNING
     Route: 048
     Dates: start: 19980101
  4. TRAMADOL HCL [Concomitant]
     Indication: PAIN
     Dosage: AT BEDTIME AS NEEDED
     Route: 048
  5. OLMESARTAN MEDOXOMIL [Concomitant]
     Indication: HYPERTENSION
     Dosage: 40/25 MG DAILY
     Route: 048
     Dates: start: 20000101
  6. LANSOPRAZOLE [Concomitant]
     Indication: CROHN'S DISEASE
     Dates: start: 19980101
  7. RISEDRONATE SODIUM [Concomitant]
     Indication: OSTEOPOROSIS
     Dates: start: 20000101
  8. VIETHYLPROPIONE [Concomitant]
     Indication: WEIGHT CONTROL
     Route: 048
  9. SENNA ALEXANDRINA [Concomitant]
     Indication: CONSTIPATION
     Dosage: 1-2 PILLS AS NEEDED
     Route: 048
  10. SERETIDE [Concomitant]
     Indication: DRUG USE FOR UNKNOWN INDICATION
     Dosage: 250/50MG TWO TIMES DAILY
     Route: 055
     Dates: start: 20030101
  11. HYOSCYAMINE SULFATE [Concomitant]
     Indication: CROHN'S DISEASE
     Dosage: 6 PILLS AS NEEDED
     Route: 048
  12. BUPROPION HYDROCHLORIDE [Concomitant]
     Indication: DRUG USE FOR UNKNOWN INDICATION
     Route: 048
     Dates: start: 20080401
  13. CYANOCOBALAMIN [Concomitant]
     Indication: DRUG USE FOR UNKNOWN INDICATION
     Route: 050

REACTIONS (9)
  - ABDOMINAL PAIN UPPER [None]
  - DYSGEUSIA [None]
  - FATIGUE [None]
  - INJECTION SITE HAEMORRHAGE [None]
  - LIGAMENT RUPTURE [None]
  - ROAD TRAFFIC ACCIDENT [None]
  - SENSORY DISTURBANCE [None]
  - SOMNOLENCE [None]
  - TENDON INJURY [None]
